FAERS Safety Report 4752419-7 (Version None)
Quarter: 2005Q3

REPORT INFORMATION
  Report Type: 
  Country: None (occurrence: None)
  Receive Date: 20050825
  Receipt Date: 20050812
  Transmission Date: 20060218
  Serious: Yes (Other)
  Sender: FDA-Public Use
  Company Number: GBWYE906712AUG05

PATIENT
  Sex: Female
  Weight: 91 kg

DRUGS (9)
  1. ENBREL [Suspect]
     Indication: DRUG USE FOR UNKNOWN INDICATION
  2. PREDNISOLONE [Concomitant]
  3. THYROXINE I 125 [Concomitant]
  4. OMEPRAZOLE [Concomitant]
  5. AMILORIDE HCL AND HYDROCHLOROTHIAZIDE [Concomitant]
  6. VIOXX [Concomitant]
  7. CODEINE PHOSPHATE/PARACETAMOL [Concomitant]
  8. FOLIC ACID [Concomitant]
  9. METHOTREXATE [Concomitant]

REACTIONS (1)
  - ENDOPHTHALMITIS [None]
